FAERS Safety Report 8592761-5 (Version None)
Quarter: 2012Q3

REPORT INFORMATION
  Report Type: 
  Country: None (occurrence: None)
  Receive Date: 20120814
  Receipt Date: 20120810
  Transmission Date: 20120928
  Serious: Yes (Other)
  Sender: FDA-Public Use
  Company Number: CA-ROCHE-1100201

PATIENT
  Age: 59 Year

DRUGS (2)
  1. AVASTIN [Suspect]
     Indication: COLORECTAL CANCER
     Dates: start: 20111102
  2. FLUOROURACIL [Suspect]
     Indication: COLORECTAL CANCER
     Dosage: REPORTED AS FOLFOX
     Dates: start: 20111102

REACTIONS (1)
  - DISEASE PROGRESSION [None]
